FAERS Safety Report 9948994 (Version 2)
Quarter: 2014Q1

REPORT INFORMATION
  Report Type: Report from Study
  Country: AU (occurrence: AU)
  Receive Date: 20140303
  Receipt Date: 20140303
  Transmission Date: 20141002
  Serious: Yes (Hospitalization, Other)
  Sender: FDA-Public Use
  Company Number: AU-ROCHE-1236936

PATIENT
  Age: 60 Year
  Sex: Female

DRUGS (2)
  1. ACTEMRA [Suspect]
     Indication: RHEUMATOID ARTHRITIS
     Route: 042
     Dates: start: 20130409
  2. PREDNISOLONE [Concomitant]

REACTIONS (10)
  - Back pain [Not Recovered/Not Resolved]
  - Sciatica [Not Recovered/Not Resolved]
  - Paraesthesia [Unknown]
  - Sinus congestion [Unknown]
  - Chest discomfort [Unknown]
  - Fatigue [Unknown]
  - Nasopharyngitis [Recovering/Resolving]
  - Ear infection [Unknown]
  - Influenza [Not Recovered/Not Resolved]
  - Malaise [Recovering/Resolving]
